FAERS Safety Report 5139850-5 (Version None)
Quarter: 2006Q4

REPORT INFORMATION
  Report Type: 
  Country: None (occurrence: None)
  Receive Date: 20061026
  Receipt Date: 20061026
  Transmission Date: 20070319
  Serious: Yes (Other)
  Sender: FDA-Public Use
  Company Number: None

PATIENT
  Sex: Male
  Weight: 80.7403 kg

DRUGS (4)
  1. LYRICA [Suspect]
     Indication: CERVICOBRACHIAL SYNDROME
     Dosage: ONE TAB  BID  PO
     Route: 048
  2. CARBIDOPA + LEVODOPA [Concomitant]
  3. LEVODOPA CR [Concomitant]
  4. MIRIPEX [Concomitant]

REACTIONS (3)
  - AGGRESSION [None]
  - ANGER [None]
  - DEPRESSION [None]
